FAERS Safety Report 6571967-0 (Version None)
Quarter: 2010Q1

REPORT INFORMATION
  Report Type: 
  Country: None (occurrence: None)
  Receive Date: 20100205
  Receipt Date: 20100126
  Transmission Date: 20100710
  Serious: Yes (Death)
  Sender: FDA-Public Use
  Company Number: IT-PFIZER INC-2010011566

PATIENT
  Age: 50 Year
  Sex: Male

DRUGS (3)
  1. ARACYTIN [Suspect]
     Indication: ACUTE MYELOID LEUKAEMIA
     Dosage: 418 MG, 1X/DAY
     Route: 042
     Dates: start: 20090727, end: 20090802
  2. ZAVEDOS [Suspect]
     Indication: ACUTE MYELOID LEUKAEMIA
     Dosage: 25 MG, 1X/DAY
     Route: 042
     Dates: start: 20090727, end: 20090729
  3. ETOPOSIDE [Suspect]
     Indication: ACUTE MYELOID LEUKAEMIA
     Dosage: 209 MG, 1X/DAY
     Route: 042
     Dates: start: 20090727, end: 20090731

REACTIONS (5)
  - HERPES VIRUS INFECTION [None]
  - HYPERPYREXIA [None]
  - PSEUDOMONAS INFECTION [None]
  - RESPIRATORY FAILURE [None]
  - STAPHYLOCOCCAL SEPSIS [None]
